FAERS Safety Report 4357618-4 (Version None)
Quarter: 2004Q2

REPORT INFORMATION
  Report Type: 
  Country: None (occurrence: None)
  Receive Date: 20040510
  Receipt Date: 20040426
  Transmission Date: 20050107
  Serious: Yes (Other)
  Sender: FDA-Public Use
  Company Number: 2004-04-1849

PATIENT

DRUGS (4)
  1. CLARITIN-D 24 HOUR [Suspect]
     Dosage: ORAL
     Route: 048
  2. ALLEGRA [Concomitant]
  3. PAXIL [Concomitant]
  4. SEROQUEL (QUETIAPINE FUMURATE) [Concomitant]

REACTIONS (2)
  - CONVULSION [None]
  - DISEASE RECURRENCE [None]
